FAERS Safety Report 20654108 (Version 1)
Quarter: 2022Q1

REPORT INFORMATION
  Report Type: Spontaneous
  Country: FR (occurrence: FR)
  Receive Date: 20220330
  Receipt Date: 20220330
  Transmission Date: 20220423
  Serious: Yes (Hospitalization)
  Sender: FDA-Public Use
  Company Number: None

PATIENT
  Age: 36 Year
  Sex: Male
  Weight: 71 kg

DRUGS (1)
  1. ACYCLOVIR [Suspect]
     Active Substance: ACYCLOVIR
     Indication: Herpes zoster meningitis
     Dosage: 06/JAN/2022, 9H00 : 1200MG (SANS HYDRATATION) ?06/JAN/2022, 18H30 : 800 MG?07/JAN/2022, 2H35 : 800MG
     Route: 042
     Dates: start: 20220106

REACTIONS (2)
  - Hallucination [Recovered/Resolved]
  - Acute kidney injury [Recovered/Resolved]

NARRATIVE: CASE EVENT DATE: 20220107
